FAERS Safety Report 10533278 (Version 1)
Quarter: 2014Q4

REPORT INFORMATION
  Report Type: Spontaneous
  Country: US (occurrence: None)
  Receive Date: 20141021
  Receipt Date: 20141021
  Transmission Date: 20150529
  Serious: Yes (Life-Threatening, Hospitalization)
  Sender: FDA-Public Use
  Company Number: None

PATIENT
  Age: 88 Year
  Sex: Female
  Weight: 58.06 kg

DRUGS (20)
  1. HYDROCHLOROTHIAZIDE. [Concomitant]
     Active Substance: HYDROCHLOROTHIAZIDE
  2. MELOXICAM. [Suspect]
     Active Substance: MELOXICAM
     Dosage: 7.5 MIL.?1 TABLETS, INCREASE TO 2 FOR PAIN?TO BE TAKEN, WITH FOOD?BY MOUTH
     Route: 048
     Dates: start: 20140821, end: 20140827
  3. SERTRALINE [Concomitant]
     Active Substance: SERTRALINE HYDROCHLORIDE
  4. TYLENOL [Concomitant]
     Active Substance: ACETAMINOPHEN
  5. LEVOTHYROXINE [Concomitant]
     Active Substance: LEVOTHYROXINE
  6. LORAZEPAM. [Concomitant]
     Active Substance: LORAZEPAM
  7. MELOXICAM. [Suspect]
     Active Substance: MELOXICAM
     Indication: PAIN
     Dosage: 7.5 MIL.?1 TABLETS, INCREASE TO 2 FOR PAIN?TO BE TAKEN, WITH FOOD?BY MOUTH
     Route: 048
     Dates: start: 20140821, end: 20140827
  8. DIGOXIN. [Concomitant]
     Active Substance: DIGOXIN
  9. NORTRIPITYLINE [Concomitant]
  10. VITAMIN C [Concomitant]
     Active Substance: ASCORBIC ACID
  11. CALCIUM [Concomitant]
     Active Substance: CALCIUM
  12. POTASSIUM [Concomitant]
     Active Substance: POTASSIUM
  13. TRAMADOL [Concomitant]
     Active Substance: TRAMADOL
  14. LUTEIN [Concomitant]
     Active Substance: LUTEIN
  15. PRESER-VISION [Concomitant]
  16. PRILOSEC [Concomitant]
     Active Substance: OMEPRAZOLE MAGNESIUM
  17. MULTI FOR HER [Concomitant]
  18. WARFARIN [Concomitant]
     Active Substance: WARFARIN
  19. FLAXSEED [Concomitant]
     Active Substance: FLAX SEED
  20. TUMS [Concomitant]
     Active Substance: CALCIUM CARBONATE

REACTIONS (4)
  - Dizziness [None]
  - Haematemesis [None]
  - Haematochezia [None]
  - Economic problem [None]

NARRATIVE: CASE EVENT DATE: 20140827
